FAERS Safety Report 25825616 (Version 1)
Quarter: 2025Q3

REPORT INFORMATION
  Report Type: Spontaneous
  Country: US (occurrence: US)
  Receive Date: 20250919
  Receipt Date: 20250919
  Transmission Date: 20251020
  Serious: Yes (Other)
  Sender: ALEXION PHARMACEUTICALS
  Company Number: US-ASTRAZENECA-202509GLO010808US

PATIENT
  Sex: Male

DRUGS (16)
  1. NEXIUM [Suspect]
     Active Substance: ESOMEPRAZOLE MAGNESIUM
  2. SYNTHROID [Concomitant]
     Active Substance: LEVOTHYROXINE SODIUM
  3. CARAFATE [Concomitant]
     Active Substance: SUCRALFATE
  4. LISINOPRIL [Concomitant]
     Active Substance: LISINOPRIL
  5. AMLODIPINE [Concomitant]
     Active Substance: AMLODIPINE BESYLATE
  6. OXYCODONE [Concomitant]
     Active Substance: OXYCODONE
  7. ROBAXIN [Concomitant]
     Active Substance: METHOCARBAMOL
  8. TYLENOL [Concomitant]
     Active Substance: ACETAMINOPHEN
  9. FERROUS SULFATE [Concomitant]
     Active Substance: FERROUS SULFATE
  10. ATORVASTATIN [Concomitant]
     Active Substance: ATORVASTATIN
  11. TRAMADOL [Concomitant]
     Active Substance: TRAMADOL
  12. PEPCID [Concomitant]
     Active Substance: FAMOTIDINE
  13. OMEPRAZOLE [Concomitant]
     Active Substance: OMEPRAZOLE
  14. ZOFRAN [Concomitant]
     Active Substance: ONDANSETRON HYDROCHLORIDE
  15. LEVOTHYROXINE [Concomitant]
     Active Substance: LEVOTHYROXINE
  16. OZEMPIC [Concomitant]
     Active Substance: SEMAGLUTIDE

REACTIONS (4)
  - Gastric polyps [Unknown]
  - Carcinoid tumour of the stomach [Unknown]
  - Gastric cancer [Unknown]
  - Duodenal polyp [Unknown]
